FAERS Safety Report 4823366-7 (Version None)
Quarter: 2005Q4

REPORT INFORMATION
  Report Type: 
  Country: None (occurrence: None)
  Receive Date: 20051107
  Receipt Date: 20051028
  Transmission Date: 20060501
  Serious: Yes (Hospitalization)
  Sender: FDA-Public Use
  Company Number: 2004-09-0564

PATIENT
  Age: 60 Year
  Sex: Male

DRUGS (4)
  1. INTRON A [Suspect]
     Indication: HEPATITIS C
     Dosage: 3 MU QD INTRAMUSCULAR
     Route: 030
     Dates: start: 20040506, end: 20040831
  2. REBETOL [Suspect]
     Indication: HEPATITIS C
     Dosage: SEE IMAGE
     Route: 048
     Dates: start: 20040506, end: 20040831
  3. REBETOL [Suspect]
     Indication: HEPATITIS C
     Dosage: SEE IMAGE
     Route: 048
     Dates: start: 20040801, end: 20040831
  4. REBETOL [Suspect]
     Indication: HEPATITIS C
     Dosage: SEE IMAGE
     Route: 048
     Dates: start: 20040506

REACTIONS (3)
  - CEREBRAL HAEMORRHAGE [None]
  - NEUTROPHIL COUNT DECREASED [None]
  - WHITE BLOOD CELL COUNT DECREASED [None]
